FAERS Safety Report 7033181 (Version 4)
Quarter: 2012Q4

REPORT INFORMATION
  Report Type: 
  Country: CA (occurrence: CA)
  Receive Date: 20090625
  Receipt Date: 20121016
  Transmission Date: 20130627
  Serious: Yes (Other)
  Sender: FDA-Public Use
  Company Number: PHHY2009CA18320

PATIENT
  Age: 74 None
  Sex: Female
  Weight: 70.6 kg

DRUGS (9)
  1. EXJADE [Suspect]
     Indication: MYELODYSPLASTIC SYNDROME
     Dosage: 1500 mg, QD
     Route: 048
     Dates: start: 20090305, end: 20090408
  2. EXJADE [Suspect]
     Indication: IRON OVERLOAD
  3. LENALIDOMIDE [Concomitant]
  4. AMOXICILLIN [Concomitant]
  5. LAMOTRIGINE [Concomitant]
     Dosage: 200 mg, QHS
  6. EPREX [Concomitant]
  7. VALIUM [Concomitant]
     Dosage: 5 mg, BID
  8. PAXIL [Concomitant]
     Dosage: 15 mg, QD
  9. ZYPREXA [Concomitant]
     Dosage: 1.85 mg, QD

REACTIONS (7)
  - Depression [Recovering/Resolving]
  - Insomnia [Recovering/Resolving]
  - Chest pain [Recovering/Resolving]
  - Night sweats [Recovering/Resolving]
  - Headache [Recovering/Resolving]
  - Dyspepsia [Recovering/Resolving]
  - Nausea [Unknown]
